FAERS Safety Report 15829823 (Version 1)
Quarter: 2019Q1

REPORT INFORMATION
  Report Type: Spontaneous
  Country: US (occurrence: US)
  Receive Date: 20190115
  Receipt Date: 20190115
  Transmission Date: 20190417
  Serious: No
  Sender: FDA-Public Use
  Company Number: US-PERRIGO-18US014403

PATIENT
  Age: 73 Year
  Sex: Male

DRUGS (2)
  1. TRETINOIN. [Suspect]
     Active Substance: TRETINOIN
     Indication: SKIN EXFOLIATION
  2. TRETINOIN. [Suspect]
     Active Substance: TRETINOIN
     Indication: HYPERKERATOSIS
     Dosage: PEA SIZE AMOUNT, QHS
     Route: 061
     Dates: start: 20181128

REACTIONS (3)
  - Condition aggravated [Unknown]
  - Application site discolouration [Unknown]
  - Off label use [Unknown]

NARRATIVE: CASE EVENT DATE: 20181128
